FAERS Safety Report 21892023 (Version 4)
Quarter: 2023Q1

REPORT INFORMATION
  Report Type: Report from Study
  Country: AR (occurrence: None)
  Receive Date: 20230120
  Receipt Date: 20230303
  Transmission Date: 20230418
  Serious: Yes (Hospitalization)
  Sender: FDA-Public Use
  Company Number: AR-ROCHE-3265367

PATIENT
  Age: 63 Year
  Sex: Male
  Weight: 83 kg

DRUGS (11)
  1. RITUXIMAB [Suspect]
     Active Substance: RITUXIMAB
     Indication: B-cell lymphoma
     Dosage: DOSE LAST STUDY DRUG ADMIN PRIOR SAE 676 MG, START DATE OF MOST RECENT DOSE OF STUDY DRUG PRIOR TO S
     Route: 041
     Dates: start: 20221012
  2. GEMCITABINE [Suspect]
     Active Substance: GEMCITABINE
     Indication: B-cell lymphoma
     Dosage: DOSE LAST STUDY DRUG ADMIN PRIOR AE 2070 MG, START DATE OF MOST RECENT DOSE OF STUDY DRUG PRIOR TO S
     Route: 042
     Dates: start: 20221012
  3. OXALIPLATIN [Suspect]
     Active Substance: OXALIPLATIN
     Indication: B-cell lymphoma
     Dosage: ON 28/DEC/2022, THE PATIENT WAS HIS MOST RECENT DOSE OF OXALIPLATIN AT 207 MG PRIOR AE/SAE ONSET.
     Route: 042
  4. ALLOPURINOL [Concomitant]
     Active Substance: ALLOPURINOL
     Indication: Prophylaxis
     Dosage: MEDICATION INDICATION PROPHYLAXIS
     Dates: start: 20221011
  5. CLONAZEPAM [Concomitant]
     Active Substance: CLONAZEPAM
     Dates: start: 20221012
  6. VALSARTAN [Concomitant]
     Active Substance: VALSARTAN
     Dates: start: 2012
  7. OMEPRAZOLE [Concomitant]
     Active Substance: OMEPRAZOLE
     Dates: start: 20221012
  8. ONDANSETRON [Concomitant]
     Active Substance: ONDANSETRON
     Dates: start: 20221012
  9. APREPITANT [Concomitant]
     Active Substance: APREPITANT
     Dates: start: 20221012
  10. ENOXAPARIN SODIUM [Concomitant]
     Active Substance: ENOXAPARIN SODIUM
     Dates: start: 20221012
  11. PIPERACILLIN SODIUM\TAZOBACTAM SODIUM [Concomitant]
     Active Substance: PIPERACILLIN SODIUM\TAZOBACTAM SODIUM

REACTIONS (1)
  - Embolism [Not Recovered/Not Resolved]

NARRATIVE: CASE EVENT DATE: 20230112
